FAERS Safety Report 11230078 (Version 3)
Quarter: 2015Q4

REPORT INFORMATION
  Report Type: Spontaneous
  Country: FR (occurrence: FR)
  Receive Date: 20150701
  Receipt Date: 20151118
  Transmission Date: 20160304
  Serious: Yes (Hospitalization)
  Sender: FDA-Public Use
  Company Number: FR-ROCHE-1600540

PATIENT
  Age: 59 Year
  Sex: Female

DRUGS (9)
  1. ENDOXAN [Suspect]
     Active Substance: CYCLOPHOSPHAMIDE
     Indication: POLYCHONDRITIS
     Dosage: INTRAVENOUS DRIP
     Route: 042
     Dates: start: 20150625, end: 20150627
  2. HYDROCORTISONE. [Concomitant]
     Active Substance: HYDROCORTISONE
     Indication: POLYCHONDRITIS
     Route: 048
     Dates: start: 2008
  3. DAFALGAN CODEINE [Concomitant]
     Active Substance: ACETAMINOPHEN\CODEINE PHOSPHATE
     Indication: POLYCHONDRITIS
     Dosage: 500 MG TO 30 G
     Route: 048
     Dates: start: 2008
  4. ESOMEPRAZOLE [Concomitant]
     Active Substance: ESOMEPRAZOLE
     Route: 048
  5. ROACTEMRA [Suspect]
     Active Substance: TOCILIZUMAB
     Indication: POLYCHONDRITIS
     Dosage: ON 30/MAR/2015, THE 11TH INJECITON WAS RECEIVED
     Route: 041
     Dates: start: 201404, end: 201505
  6. CEBUTID [Concomitant]
     Active Substance: FLURBIPROFEN
     Indication: POLYCHONDRITIS
     Dosage: FOR 4 YEARS
     Route: 048
  7. CORTANCYL [Concomitant]
     Active Substance: PREDNISONE
  8. ZELITREX [Concomitant]
     Active Substance: VALACYCLOVIR HYDROCHLORIDE
     Indication: PRODUCT USED FOR UNKNOWN INDICATION
     Dosage: FOR A YEAR
     Route: 048
     Dates: start: 2008
  9. LEVOTHYROX [Concomitant]
     Active Substance: LEVOTHYROXINE
     Route: 048
     Dates: start: 2006

REACTIONS (8)
  - Face oedema [Recovered/Resolved]
  - Dyspnoea [Recovered/Resolved]
  - Cough [Recovered/Resolved]
  - Hearing impaired [Recovered/Resolved]
  - Localised oedema [Recovering/Resolving]
  - Aphonia [Recovered/Resolved]
  - Eyelid oedema [Recovered/Resolved]
  - Dizziness [Recovered/Resolved]

NARRATIVE: CASE EVENT DATE: 20150406
